FAERS Safety Report 11770370 (Version 2)
Quarter: 2015Q4

REPORT INFORMATION
  Report Type: Spontaneous
  Country: US (occurrence: US)
  Receive Date: 20151123
  Receipt Date: 20151123
  Transmission Date: 20160304
  Serious: No
  Sender: FDA-Public Use
  Company Number: US-PERRIGO-15US004081

PATIENT
  Sex: Female

DRUGS (1)
  1. POLYETHYLENE GLYCOL 3350. [Suspect]
     Active Substance: POLYETHYLENE GLYCOL 3350
     Indication: PRODUCT USED FOR UNKNOWN INDICATION
     Dosage: UNKNOWN, LESS THAN 17 G, QD
     Route: 048
     Dates: start: 201504

REACTIONS (3)
  - Incorrect drug administration duration [Unknown]
  - Underdose [Unknown]
  - No adverse event [Unknown]

NARRATIVE: CASE EVENT DATE: 201504
